FAERS Safety Report 4895550-8 (Version None)
Quarter: 2006Q1

REPORT INFORMATION
  Report Type: 
  Country: None (occurrence: None)
  Receive Date: 20060130
  Receipt Date: 20060119
  Transmission Date: 20060701
  Serious: Yes (Hospitalization)
  Sender: FDA-Public Use
  Company Number: US-ROCHE-432705

PATIENT
  Age: 52 Year
  Sex: Female

DRUGS (3)
  1. BONIVA [Suspect]
     Indication: OSTEOPOROSIS PROPHYLAXIS
     Route: 048
     Dates: start: 20060116, end: 20060116
  2. RED YEAST RICE [Concomitant]
  3. ZETIA [Concomitant]

REACTIONS (10)
  - ARTHRALGIA [None]
  - CHEST PAIN [None]
  - CONVULSION [None]
  - DEHYDRATION [None]
  - DIARRHOEA [None]
  - LOSS OF CONSCIOUSNESS [None]
  - MOBILITY DECREASED [None]
  - MUSCLE SPASMS [None]
  - PAIN IN EXTREMITY [None]
  - SYNCOPE [None]
